FAERS Safety Report 21281022 (Version 1)
Quarter: 2022Q3

REPORT INFORMATION
  Report Type: Spontaneous
  Country: CA (occurrence: CA)
  Receive Date: 20220901
  Receipt Date: 20220901
  Transmission Date: 20221026
  Serious: Yes (Other)
  Sender: FDA-Public Use
  Company Number: CA-PFIZER INC-202201108583

PATIENT
  Age: 67 Year
  Sex: Female

DRUGS (6)
  1. METHOTREXATE SODIUM [Suspect]
     Active Substance: METHOTREXATE SODIUM
     Dosage: 2.5 MG, WEEKLY X 10 DAILY Q WEEKLY
     Dates: start: 2002
  2. SULFASALAZINE DELAYED-RELEASE [Suspect]
     Active Substance: SULFASALAZINE
     Dosage: 100 MG, DAILY X 6
     Dates: start: 1992
  3. ENBREL [Concomitant]
     Active Substance: ETANERCEPT
     Dosage: 1 DF
     Route: 065
     Dates: start: 200610, end: 2016
  4. METOPROLOL [Concomitant]
     Active Substance: METOPROLOL
     Indication: Blood pressure abnormal
     Dosage: UNK, NO HOLD AS PER RX
  5. REMICADE [Concomitant]
     Active Substance: INFLIXIMAB
     Dosage: UNK
     Dates: start: 2002, end: 2004
  6. RITUXAN [Concomitant]
     Active Substance: RITUXIMAB
     Dosage: UNK, Q 6 MONTHS
     Dates: start: 2016, end: 202201

REACTIONS (1)
  - Tooth disorder [Unknown]
